FAERS Safety Report 9334709 (Version 1)
Quarter: 2013Q2

REPORT INFORMATION
  Report Type: Spontaneous
  Country: US (occurrence: US)
  Receive Date: 20130606
  Receipt Date: 20130606
  Transmission Date: 20140414
  Serious: No
  Sender: FDA-Public Use
  Company Number: US-AMGEN-USASP2013021594

PATIENT
  Age: 57 Year
  Sex: Female

DRUGS (5)
  1. PROLIA [Suspect]
     Indication: OSTEOPOROSIS POSTMENOPAUSAL
     Dosage: UNK
     Dates: start: 20130314
  2. CLONIDINE [Suspect]
     Dosage: UNK, BID
     Dates: start: 20130315, end: 20130321
  3. DEPAKOTE [Concomitant]
     Dosage: 500 MG, 5 DF QD
  4. DILANTIN                           /00017401/ [Concomitant]
     Dosage: 100 MG,  4 DF QD
  5. SIMVASTATIN [Concomitant]

REACTIONS (4)
  - Nervousness [Unknown]
  - Dizziness [Unknown]
  - Abdominal discomfort [Unknown]
  - Abdominal pain upper [Unknown]
